FAERS Safety Report 8681295 (Version 2)
Quarter: 2013Q4

REPORT INFORMATION
  Report Type: Spontaneous
  Country: IL (occurrence: IL)
  Receive Date: 20120725
  Receipt Date: 20131106
  Transmission Date: 20140711
  Serious: Yes (Hospitalization)
  Sender: FDA-Public Use
  Company Number: IL-009507513-1207ISR006281

PATIENT
  Age: 49 Year
  Sex: Male

DRUGS (9)
  1. VICTRELIS [Suspect]
     Indication: HEPATITIS C
     Dosage: UNK
     Route: 048
     Dates: start: 201204
  2. REBETOL [Concomitant]
     Indication: HEPATITIS C
     Dosage: UNK MG, UNK
     Route: 048
     Dates: start: 201203
  3. REBETOL [Concomitant]
     Dosage: 1000 MG, UNK
     Dates: start: 20120615
  4. PEGINTRON [Concomitant]
     Indication: HEPATITIS C
     Dosage: UNK
     Dates: start: 201203
  5. PEGINTRON [Concomitant]
     Dosage: 140 MICROGRAM, UNK
     Dates: start: 20120615
  6. ESTO (ESCITALOPRAM OXALATE) [Concomitant]
     Dosage: 10 MG, QID
     Dates: start: 201205
  7. ESTO (ESCITALOPRAM OXALATE) [Concomitant]
     Dosage: 10 MG, BID
     Dates: start: 20120701
  8. COUMADIN [Concomitant]
     Dosage: UNK
     Dates: start: 1991
  9. LORIVAN [Concomitant]
     Dosage: 1 MG, UNK
     Dates: start: 201205

REACTIONS (11)
  - Eye pain [Unknown]
  - Amnesia [Unknown]
  - Peripheral coldness [Unknown]
  - Headache [Unknown]
  - Dizziness [Unknown]
  - Nausea [Unknown]
  - Dry mouth [Unknown]
  - Haemorrhoids [Unknown]
  - Depression suicidal [Unknown]
  - Aggression [Unknown]
  - Neutropenia [Unknown]
